FAERS Safety Report 14535898 (Version 1)
Quarter: 2018Q1

REPORT INFORMATION
  Report Type: Spontaneous
  Country: US (occurrence: US)
  Receive Date: 20180214
  Receipt Date: 20180214
  Transmission Date: 20180509
  Serious: Yes (Disabling)
  Sender: FDA-Public Use
  Company Number: None

PATIENT
  Age: 37 Year
  Sex: Female
  Weight: 53.55 kg

DRUGS (1)
  1. LEUPROLIDE ACETATE. [Suspect]
     Active Substance: LEUPROLIDE ACETATE
     Indication: PREMENSTRUAL DYSPHORIC DISORDER
     Dosage: ?          OTHER FREQUENCY:EVERY 3 MONTHS;?
     Route: 030

REACTIONS (5)
  - Asthenia [None]
  - Arthralgia [None]
  - Fatigue [None]
  - Myalgia [None]
  - Depression [None]

NARRATIVE: CASE EVENT DATE: 20180201
